FAERS Safety Report 7699007-0 (Version None)
Quarter: 2011Q3

REPORT INFORMATION
  Report Type: 
  Country: None (occurrence: None)
  Receive Date: 20110819
  Receipt Date: 20110817
  Transmission Date: 20111222
  Serious: Yes (Death)
  Sender: FDA-Public Use
  Company Number: US-CEPHALON-2011004337

PATIENT
  Sex: Female
  Weight: 114 kg

DRUGS (5)
  1. IDARUBICIN HCL [Suspect]
     Dates: end: 20110321
  2. ARSENIC TRIOXIDE [Suspect]
     Indication: ACUTE PROMYELOCYTIC LEUKAEMIA
     Route: 042
     Dates: end: 20110715
  3. MITOXANTRONE [Suspect]
     Dates: end: 20110728
  4. TRETINOIN [Suspect]
     Dates: end: 20110807
  5. CYTARABINE [Suspect]
     Dates: end: 20110727

REACTIONS (1)
  - SEPSIS [None]
